FAERS Safety Report 24242695 (Version 1)
Quarter: 2024Q3

REPORT INFORMATION
  Report Type: Spontaneous
  Country: CH (occurrence: CH)
  Receive Date: 20240823
  Receipt Date: 20240823
  Transmission Date: 20241016
  Serious: Yes (Hospitalization, Other)
  Sender: MERCK
  Company Number: None

PATIENT
  Age: 81 Year
  Sex: Male
  Weight: 95 kg

DRUGS (4)
  1. KEYTRUDA [Suspect]
     Active Substance: PEMBROLIZUMAB
     Indication: Non-small cell lung cancer stage IIIB
     Dosage: 200 MILLIGRAM, Q3W
     Route: 040
     Dates: start: 20240423
  2. CARBOPLATIN [Suspect]
     Active Substance: CARBOPLATIN
     Indication: Non-small cell lung cancer stage IIIB
     Dosage: 250 MILLIGRAM, CYCLICAL
     Route: 040
     Dates: start: 20240123, end: 20240523
  3. PACLITAXEL [Suspect]
     Active Substance: PACLITAXEL
     Indication: Non-small cell lung cancer stage IIIB
     Dosage: 85 MILLIGRAM, CYCLICAL
     Route: 040
     Dates: start: 20240311, end: 20240523
  4. NAVELBINE [Suspect]
     Active Substance: VINORELBINE TARTRATE
     Indication: Non-small cell lung cancer stage IIIB
     Dosage: 60 MILLIGRAM, CYCLICAL
     Route: 040
     Dates: start: 20240123, end: 20240220

REACTIONS (2)
  - Cardiac failure acute [Recovering/Resolving]
  - Right ventricular failure [Recovering/Resolving]

NARRATIVE: CASE EVENT DATE: 20240701
